FAERS Safety Report 16969454 (Version 2)
Quarter: 2019Q4

REPORT INFORMATION
  Report Type: Spontaneous
  Country: US (occurrence: US)
  Receive Date: 20191029
  Receipt Date: 20191119
  Transmission Date: 20200122
  Serious: Yes (Other)
  Sender: FDA-Public Use
  Company Number: US-PFIZER INC-2018365560

PATIENT
  Age: 38 Year
  Sex: Male
  Weight: 83 kg

DRUGS (2)
  1. CELEBREX [Suspect]
     Active Substance: CELECOXIB
     Indication: ANKYLOSING SPONDYLITIS
  2. CELEBREX [Suspect]
     Active Substance: CELECOXIB
     Indication: ARTHRITIS
     Dosage: 400 MG, 2X/DAY (WITH FOOD)
     Route: 048

REACTIONS (13)
  - Therapeutic product effect incomplete [Unknown]
  - Neck pain [Unknown]
  - Skin exfoliation [Unknown]
  - Abnormal behaviour [Unknown]
  - Skin haemorrhage [Unknown]
  - Uveitis [Unknown]
  - Hand fracture [Unknown]
  - Blindness unilateral [Unknown]
  - Rash [Not Recovered/Not Resolved]
  - Frustration tolerance decreased [Unknown]
  - Prescribed overdose [Unknown]
  - Skin atrophy [Unknown]
  - Vision blurred [Unknown]
